FAERS Safety Report 5937059-6 (Version None)
Quarter: 2008Q4

REPORT INFORMATION
  Report Type: 
  Country: None (occurrence: None)
  Receive Date: 20081031
  Receipt Date: 20081024
  Transmission Date: 20090506
  Serious: Yes (Life-Threatening)
  Sender: FDA-Public Use
  Company Number: JP-BAYER-200812329BYL

PATIENT
  Age: 73 Year
  Sex: Male

DRUGS (15)
  1. CIPROXAN-I.V. [Suspect]
     Indication: PNEUMONIA
     Dosage: TOTAL DAILY DOSE: 600 MG  UNIT DOSE: 300 MG
     Route: 041
     Dates: start: 20080926, end: 20080928
  2. CIPROXAN-I.V. [Suspect]
     Dosage: TOTAL DAILY DOSE: 300 MG  UNIT DOSE: 300 MG
     Route: 041
     Dates: start: 20080929, end: 20080929
  3. FUNGUARD [Suspect]
     Indication: PNEUMONIA
     Route: 042
     Dates: start: 20080928, end: 20080929
  4. CLARITHROMYCIN [Concomitant]
     Indication: PNEUMONIA
     Dosage: TOTAL DAILY DOSE: 200 MG  UNIT DOSE: 100 MG
     Route: 048
     Dates: start: 20080924, end: 20080929
  5. AMARYL [Concomitant]
     Dosage: TOTAL DAILY DOSE: 2 MG  UNIT DOSE: 2 MG
     Route: 048
  6. BLOPRESS [Concomitant]
     Dosage: TOTAL DAILY DOSE: 4 MG  UNIT DOSE: 4 MG
     Route: 048
     Dates: end: 20080929
  7. MUCOSTA [Concomitant]
     Dosage: TOTAL DAILY DOSE: 200 MG  UNIT DOSE: 100 MG
     Route: 048
     Dates: end: 20080929
  8. NEUER [Concomitant]
     Dosage: TOTAL DAILY DOSE: 400 MG  UNIT DOSE: 400 MG
     Route: 048
     Dates: end: 20080929
  9. PENTASA [Concomitant]
     Dosage: TOTAL DAILY DOSE: 1500 MG
     Route: 048
  10. LAC-B [Concomitant]
     Dosage: TOTAL DAILY DOSE: 9 G  UNIT DOSE: 1 G
     Route: 048
     Dates: end: 20080929
  11. STERONEMA [Concomitant]
     Route: 054
     Dates: end: 20080925
  12. BFLUID [Concomitant]
     Dosage: TOTAL DAILY DOSE: 500 ML  UNIT DOSE: 500 ML
     Route: 042
     Dates: start: 20080926, end: 20080929
  13. BISOLVON [Concomitant]
     Dosage: TOTAL DAILY DOSE: 8 MG  UNIT DOSE: 4 MG
     Route: 048
     Dates: start: 20080926, end: 20080929
  14. SOLULACT [Concomitant]
     Dosage: TOTAL DAILY DOSE: 500 ML  UNIT DOSE: 500 ML
     Route: 042
     Dates: start: 20080927, end: 20080929
  15. SOLDEM 3A [Concomitant]
     Dosage: TOTAL DAILY DOSE: 500 ML  UNIT DOSE: 500 ML
     Route: 042
     Dates: start: 20080927, end: 20080929

REACTIONS (1)
  - HEPATITIS ACUTE [None]
